FAERS Safety Report 10729569 (Version 1)
Quarter: 2015Q1

REPORT INFORMATION
  Report Type: Spontaneous
  Country: IR (occurrence: IR)
  Receive Date: 20150122
  Receipt Date: 20150122
  Transmission Date: 20150721
  Serious: Yes (Death)
  Sender: FDA-Public Use
  Company Number: IR-CTI_01669_2015

PATIENT
  Age: 2 Day
  Sex: Male

DRUGS (4)
  1. AMPICILLIN [Concomitant]
     Active Substance: AMPICILLIN
     Dosage: DF
     Route: 042
  2. GENTAMICIN. [Concomitant]
     Active Substance: GENTAMICIN
     Dosage: DF
     Route: 042
  3. VITAMIN K [Concomitant]
     Active Substance: PHYTONADIONE
     Dosage: DF
     Route: 042
  4. CUROSURF [Suspect]
     Active Substance: PORACTANT ALFA
     Indication: NEONATAL RESPIRATORY DISTRESS SYNDROME
     Dosage: DF 2.5 CC/KG OF BODY WEIGHT, ONCE
     Route: 007

REACTIONS (1)
  - Pulmonary haemorrhage [Fatal]
